FAERS Safety Report 6737341-9 (Version None)
Quarter: 2010Q2

REPORT INFORMATION
  Report Type: 
  Country: None (occurrence: None)
  Receive Date: 20100524
  Receipt Date: 20100503
  Transmission Date: 20101027
  Serious: Yes (Hospitalization)
  Sender: FDA-Public Use
  Company Number: FR-JNJFOC-20090404413

PATIENT
  Sex: Female

DRUGS (6)
  1. ZALDIAR [Suspect]
     Indication: PAIN
     Route: 048
  2. TAREG [Suspect]
     Indication: HYPERTENSION
     Route: 048
  3. TENSTATEN [Suspect]
     Indication: HYPERTENSION
     Route: 048
  4. MODURETIC 5-50 [Suspect]
     Indication: HYPERTENSION
     Route: 048
  5. CALCITONIN-SALMON [Concomitant]
     Route: 065
  6. LOPERAMIDE [Concomitant]
     Route: 065

REACTIONS (3)
  - FALL [None]
  - PELVIC FRACTURE [None]
  - SPINAL COMPRESSION FRACTURE [None]
